FAERS Safety Report 7472761-9 (Version None)
Quarter: 2011Q2

REPORT INFORMATION
  Report Type: 
  Country: None (occurrence: None)
  Receive Date: 20110511
  Receipt Date: 20110427
  Transmission Date: 20111010
  Serious: Yes (Hospitalization)
  Sender: FDA-Public Use
  Company Number: FI-JNJFOC-20110411781

PATIENT
  Age: 25 Year
  Sex: Male

DRUGS (5)
  1. HALOPERIDOL [Suspect]
     Indication: PARANOIA
     Dosage: 1 MG
     Route: 065
  2. SEPTRA [Concomitant]
     Indication: PRODUCT USED FOR UNKNOWN INDICATION
     Route: 065
  3. MIRTAZAPIN [Concomitant]
     Indication: PRODUCT USED FOR UNKNOWN INDICATION
     Route: 065
  4. KETIPINOR [Concomitant]
     Dosage: 200MG IN MORNING AND 100 MG IN EVENING
     Route: 065
  5. XALATAN [Concomitant]
     Route: 047

REACTIONS (6)
  - PHARYNGEAL OEDEMA [None]
  - SWOLLEN TONGUE [None]
  - JOINT STIFFNESS [None]
  - PALATAL DISORDER [None]
  - DYSPNOEA [None]
  - SPEECH DISORDER [None]
